FAERS Safety Report 9077539 (Version 1)
Quarter: 2013Q1

REPORT INFORMATION
  Report Type: Report from Study
  Country: US (occurrence: US)
  Receive Date: 20130130
  Receipt Date: 20130130
  Transmission Date: 20140127
  Serious: Yes (Hospitalization)
  Sender: FDA-Public Use
  Company Number: US-ABBOTT-12P-163-0970205-00

PATIENT
  Age: 69 Year
  Sex: Male

DRUGS (12)
  1. HUMIRA 40 MG/ 0.8 ML PRE-FILLED SYRINGE [Suspect]
     Indication: PSORIASIS
     Dates: start: 201001
  2. GUAIFENESIN [Concomitant]
     Indication: BLOOD CHOLESTEROL
  3. METFORMIN [Concomitant]
     Indication: DIABETES MELLITUS
  4. VYTORIN [Concomitant]
     Indication: PRODUCT USED FOR UNKNOWN INDICATION
     Dosage: 10/40 DAILY
  5. COZAAR [Concomitant]
     Indication: PRODUCT USED FOR UNKNOWN INDICATION
  6. LYRICA [Concomitant]
     Indication: FIBROMYALGIA
  7. ASA [Concomitant]
     Indication: PRODUCT USED FOR UNKNOWN INDICATION
  8. XALATAN [Concomitant]
     Indication: GLAUCOMA
     Dosage: 1 DROP EACH EYE DAILY
  9. VITAMIN C [Concomitant]
     Indication: VITAMIN SUPPLEMENTATION
  10. ONE A DAY MENS [Concomitant]
     Indication: VITAMIN SUPPLEMENTATION
     Dosage: DAILY
  11. CELEBREX [Concomitant]
     Indication: FIBROMYALGIA
  12. LEVSIN [Concomitant]
     Indication: MUSCLE RELAXANT THERAPY

REACTIONS (5)
  - Urinary tract infection staphylococcal [Recovered/Resolved]
  - Sepsis [Recovered/Resolved]
  - Cystitis [Recovered/Resolved]
  - Kidney infection [Recovering/Resolving]
  - Cystitis [Recovering/Resolving]
